FAERS Safety Report 7295083-8 (Version None)
Quarter: 2011Q1

REPORT INFORMATION
  Report Type: 
  Country: None (occurrence: None)
  Receive Date: 20110216
  Receipt Date: 20110203
  Transmission Date: 20110831
  Serious: Yes (Hospitalization)
  Sender: FDA-Public Use
  Company Number: NL-MEDIMMUNE-MEDI-0012414

PATIENT
  Sex: Female

DRUGS (2)
  1. SYNAGIS [Suspect]
     Route: 030
     Dates: start: 20101122, end: 20101221
  2. SYNAGIS [Suspect]
     Route: 030
     Dates: start: 20110201, end: 20110201

REACTIONS (5)
  - RESPIRATORY SYNCYTIAL VIRUS TEST POSITIVE [None]
  - NASOPHARYNGITIS [None]
  - FATIGUE [None]
  - CYANOSIS [None]
  - DYSPNOEA [None]
